FAERS Safety Report 8231160-2 (Version None)
Quarter: 2012Q1

REPORT INFORMATION
  Report Type: 
  Country: None (occurrence: None)
  Receive Date: 20120323
  Receipt Date: 20120323
  Transmission Date: 20120608
  Serious: Yes (Hospitalization)
  Sender: FDA-Public Use
  Company Number: None

PATIENT
  Sex: Female
  Weight: 122.92 kg

DRUGS (4)
  1. AZITHROMYCIN [Suspect]
     Indication: BRONCHITIS
     Dosage: 2 TABLETS ON DAY 1, 1 AFTER
     Route: 048
     Dates: start: 20120302, end: 20120304
  2. NYQUILL [Concomitant]
     Route: 048
  3. ALBUTEROL [Concomitant]
  4. THERAFLU [Concomitant]
     Route: 048

REACTIONS (5)
  - CHROMATURIA [None]
  - BLOOD CREATINE PHOSPHOKINASE INCREASED [None]
  - RASH MACULAR [None]
  - MYALGIA [None]
  - MUSCLE SPASMS [None]
